FAERS Safety Report 9258638 (Version 1)
Quarter: 2013Q1

REPORT INFORMATION
  Report Type: Spontaneous
  Country: US (occurrence: None)
  Receive Date: 20121212
  Receipt Date: 20121212
  Transmission Date: 20140127
  Serious: No
  Sender: FDA-Public Use
  Company Number: 1209USA008639

PATIENT
  Age: 60 Year
  Sex: Female

DRUGS (4)
  1. VICTRELIS [Suspect]
     Indication: HEPATITIS C
     Route: 048
     Dates: start: 201203
  2. PEGASYS [Suspect]
  3. COPEGUS [Suspect]
  4. PEGINTRON [Suspect]

REACTIONS (2)
  - Dysgeusia [None]
  - Gastroenteritis viral [None]
